FAERS Safety Report 11787418 (Version 1)
Quarter: 2015Q4

REPORT INFORMATION
  Report Type: Spontaneous
  Country: PL (occurrence: PL)
  Receive Date: 20151130
  Receipt Date: 20151130
  Transmission Date: 20160305
  Serious: Yes (Death, Other)
  Sender: FDA-Public Use
  Company Number: PHHY2015PL154094

PATIENT
  Age: 13 Year
  Sex: Male

DRUGS (3)
  1. NELARABINE [Suspect]
     Active Substance: NELARABINE
     Indication: ACUTE LYMPHOCYTIC LEUKAEMIA RECURRENT
     Dosage: 650 MG/M2, QD
     Route: 065
     Dates: start: 20140925, end: 20141005
  2. NELARABINE [Suspect]
     Active Substance: NELARABINE
     Dosage: 650 MG/M2, QD
     Route: 065
     Dates: start: 20141017, end: 20141027
  3. CYCLOPHOSPHAMIDE. [Suspect]
     Active Substance: CYCLOPHOSPHAMIDE
     Indication: ACUTE LYMPHOCYTIC LEUKAEMIA RECURRENT
     Dosage: 440 MG/M2, QD
     Route: 065
     Dates: start: 20140925, end: 20141005

REACTIONS (4)
  - Acute lymphocytic leukaemia recurrent [Fatal]
  - Sinusitis [Unknown]
  - Malignant neoplasm progression [Fatal]
  - Bone marrow failure [Unknown]
